FAERS Safety Report 6904505-0 (Version None)
Quarter: 2010Q3

REPORT INFORMATION
  Report Type: 
  Country: None (occurrence: None)
  Receive Date: 20100804
  Receipt Date: 20090608
  Transmission Date: 20110219
  Serious: Yes (Other)
  Sender: FDA-Public Use
  Company Number: US-PFIZER INC-2009167503

PATIENT
  Sex: Female
  Weight: 58.957 kg

DRUGS (3)
  1. LYRICA [Suspect]
     Indication: FIBROMYALGIA
     Dosage: UNK
     Route: 048
     Dates: start: 20080401
  2. CYMBALTA [Concomitant]
     Dosage: UNK
  3. AMBIEN [Concomitant]
     Dosage: UNK

REACTIONS (10)
  - ANXIETY [None]
  - DEPRESSION [None]
  - DIZZINESS [None]
  - DYSPNOEA [None]
  - GAIT DISTURBANCE [None]
  - INSOMNIA [None]
  - OEDEMA PERIPHERAL [None]
  - PAIN IN EXTREMITY [None]
  - SUICIDAL IDEATION [None]
  - WEIGHT INCREASED [None]
